FAERS Safety Report 7034407-3 (Version None)
Quarter: 2010Q4

REPORT INFORMATION
  Report Type: 
  Country: None (occurrence: None)
  Receive Date: 20101008
  Receipt Date: 20100927
  Transmission Date: 20110411
  Serious: Yes (Other)
  Sender: FDA-Public Use
  Company Number: PHHY2010US11382

PATIENT
  Sex: Female
  Weight: 93.878 kg

DRUGS (8)
  1. GLEEVEC [Suspect]
     Indication: GASTROINTESTINAL STROMAL TUMOUR
     Dosage: 400 MG, DAILY
     Route: 048
     Dates: start: 20030901
  2. GLEEVEC [Suspect]
     Indication: MYELODYSPLASTIC SYNDROME
     Dosage: 400 MG DAILY
     Route: 048
     Dates: start: 20100225
  3. AMBIEN [Concomitant]
  4. NORVASC [Concomitant]
  5. DIOVAN [Concomitant]
  6. ALTACE [Concomitant]
  7. MECLIZINE [Concomitant]
  8. OMEPRAZOLE [Concomitant]

REACTIONS (9)
  - BLOOD PRESSURE INCREASED [None]
  - DIARRHOEA [None]
  - DIZZINESS [None]
  - DYSPNOEA [None]
  - EYE OEDEMA [None]
  - HIP SURGERY [None]
  - NAUSEA [None]
  - PYREXIA [None]
  - VOMITING [None]
